FAERS Safety Report 23588622 (Version 1)
Quarter: 2024Q1

REPORT INFORMATION
  Report Type: Spontaneous
  Country: CA (occurrence: CA)
  Receive Date: 20240302
  Receipt Date: 20240302
  Transmission Date: 20240410
  Serious: Yes (Life-Threatening, Hospitalization, Disabling)
  Sender: FDA-Public Use
  Company Number: None

PATIENT
  Age: 74 Year
  Sex: Female

DRUGS (16)
  1. CAPECITABINE [Suspect]
     Active Substance: CAPECITABINE
     Indication: Product used for unknown indication
     Dosage: 2 EVERY ONE DAY
     Route: 048
  2. ACYCLOVIR [Concomitant]
     Active Substance: ACYCLOVIR
  3. AMLODIPINE [Concomitant]
     Active Substance: AMLODIPINE BESYLATE
     Route: 065
  4. CANDESARTAN [Concomitant]
     Active Substance: CANDESARTAN
  5. ERTAPENEM [Concomitant]
     Active Substance: ERTAPENEM
  6. FILGRASTIM [Concomitant]
     Active Substance: FILGRASTIM
  7. FLAGYL [Concomitant]
     Active Substance: METRONIDAZOLE\METRONIDAZOLE HYDROCHLORIDE
  8. FRAGMIN [Concomitant]
     Active Substance: DALTEPARIN SODIUM
  9. GABAPENTIN [Concomitant]
     Active Substance: GABAPENTIN
  10. LABETALOL [Concomitant]
     Active Substance: LABETALOL\LABETALOL HYDROCHLORIDE
  11. METHIMAZOLE [Concomitant]
     Active Substance: METHIMAZOLE
  12. METOCLOPRAMIDE [Concomitant]
     Active Substance: METOCLOPRAMIDE
  13. MORPHINE [Concomitant]
     Active Substance: MORPHINE
  14. NYSTATIN [Concomitant]
     Active Substance: NYSTATIN
  15. PRAVASTATIN SODIUM [Concomitant]
     Active Substance: PRAVASTATIN SODIUM
  16. RANITIDINE [Concomitant]
     Active Substance: RANITIDINE

REACTIONS (7)
  - Decreased appetite [Unknown]
  - Endotracheal intubation [Unknown]
  - Gastrointestinal tube insertion [Unknown]
  - Pancytopenia [Unknown]
  - Pneumonia [Unknown]
  - Respiratory failure [Unknown]
  - Tracheostomy [Unknown]
